FAERS Safety Report 9205183 (Version 1)
Quarter: 2013Q2

REPORT INFORMATION
  Report Type: Spontaneous
  Country: DE (occurrence: DE)
  Receive Date: 20130402
  Receipt Date: 20130402
  Transmission Date: 20140414
  Serious: Yes (Other)
  Sender: FDA-Public Use
  Company Number: DE-TEVA-393753GER

PATIENT
  Sex: Female

DRUGS (1)
  1. VENTOLAIR [Suspect]
     Dosage: 4 DOSAGE FORMS DAILY; 1 PUFF = 1 DF, 4 PUFF DAILY
     Route: 055
     Dates: start: 201302

REACTIONS (4)
  - Foreign body aspiration [Unknown]
  - Vomiting [Unknown]
  - Cough [Unknown]
  - Retching [Unknown]
